FAERS Safety Report 7912476-3 (Version None)
Quarter: 2011Q4

REPORT INFORMATION
  Report Type: 
  Country: None (occurrence: None)
  Receive Date: 20111114
  Receipt Date: 20111108
  Transmission Date: 20120403
  Serious: No
  Sender: FDA-Public Use
  Company Number: US-PFIZER INC-2011275450

PATIENT
  Sex: Male

DRUGS (1)
  1. NEURONTIN [Suspect]
     Indication: HEADACHE
     Dosage: UNK
     Dates: start: 20111101

REACTIONS (5)
  - AGITATION [None]
  - INSOMNIA [None]
  - MORBID THOUGHTS [None]
  - TACHYPHRENIA [None]
  - THINKING ABNORMAL [None]
